FAERS Safety Report 10049064 (Version 3)
Quarter: 2014Q2

REPORT INFORMATION
  Report Type: Spontaneous
  Country: US (occurrence: US)
  Receive Date: 20140331
  Receipt Date: 20140519
  Transmission Date: 20141212
  Serious: Yes (Hospitalization)
  Sender: FDA-Public Use
  Company Number: US-B.I. PHARMACEUTICALS,INC./RIDGEFIELD-2013-BI-31565BP

PATIENT
  Sex: Female
  Weight: 54.43 kg

DRUGS (14)
  1. PRADAXA [Suspect]
     Indication: ATRIAL FIBRILLATION
     Dosage: 300 MG
     Route: 048
     Dates: start: 20110628, end: 20120819
  2. SUCRALFATE [Concomitant]
     Dosage: 2 G
     Route: 048
  3. SPIRONOLACTONE [Concomitant]
     Dosage: 25 MG
     Route: 048
  4. FOLIVANE PLUS [Concomitant]
     Route: 048
  5. TRAMADOL [Concomitant]
     Route: 048
  6. AMBIEN [Concomitant]
     Route: 048
  7. EDECRIN [Concomitant]
     Dosage: 25 MG
     Route: 048
  8. AMIODARONE [Concomitant]
     Dosage: 200 MG
     Route: 048
  9. VITAMIN C [Concomitant]
     Dosage: 1 G
     Route: 048
  10. LEVOTHYROXINE [Concomitant]
     Dosage: 100 MCG
     Route: 048
  11. ATORVASTATIN [Concomitant]
     Dosage: 20 MG
     Route: 048
  12. HYDROCODONE/ACETAMINOPHEN [Concomitant]
     Route: 048
  13. XOPENX [Concomitant]
     Route: 065
  14. FLOVENT [Concomitant]
     Route: 065

REACTIONS (2)
  - Upper gastrointestinal haemorrhage [Unknown]
  - Anaemia [Unknown]
